FAERS Safety Report 14627241 (Version 1)
Quarter: 2018Q1

REPORT INFORMATION
  Report Type: Spontaneous
  Country: US (occurrence: US)
  Receive Date: 20180312
  Receipt Date: 20180312
  Transmission Date: 20180509
  Serious: Yes (Other)
  Sender: FDA-Public Use
  Company Number: US-PFIZER INC-2018098751

PATIENT
  Age: 55 Year
  Sex: Male

DRUGS (3)
  1. LOVASTATIN. [Concomitant]
     Active Substance: LOVASTATIN
  2. AMIODARONE HCL [Suspect]
     Active Substance: AMIODARONE HYDROCHLORIDE
     Indication: VENTRICULAR TACHYCARDIA
     Dosage: 400 MG, DAILY
     Route: 065
  3. LITHIUM. [Interacting]
     Active Substance: LITHIUM
     Indication: DEPRESSION
     Dosage: 600 MG, DAILY
     Route: 065

REACTIONS (7)
  - Drug interaction [Unknown]
  - Lethargy [Unknown]
  - Dysphonia [Unknown]
  - Asthenia [Unknown]
  - Weight increased [Unknown]
  - Depression [Unknown]
  - Hypothyroidism [Recovered/Resolved]
